FAERS Safety Report 14593819 (Version 2)
Quarter: 2018Q1

REPORT INFORMATION
  Report Type: Spontaneous
  Country: US (occurrence: US)
  Receive Date: 20180302
  Receipt Date: 20180330
  Transmission Date: 20180509
  Serious: No
  Sender: FDA-Public Use
  Company Number: US-009507513-1803USA001275

PATIENT
  Age: 59 Year
  Sex: Female

DRUGS (1)
  1. ZERBAXA [Suspect]
     Active Substance: CEFTOLOZANE SULFATE\TAZOBACTAM SODIUM
     Indication: PSEUDOMONAL BACTERAEMIA
     Dosage: 3 G EVERY 8 HOURS INTERMITTENT INFUSIONS (9 G/24 HOURS); HIGH DOSE
     Route: 041

REACTIONS (2)
  - Overdose [Unknown]
  - Product use in unapproved indication [Unknown]
